FAERS Safety Report 23053372 (Version 1)
Quarter: 2023Q4

REPORT INFORMATION
  Report Type: Spontaneous
  Country: FR (occurrence: FR)
  Receive Date: 20231011
  Receipt Date: 20231011
  Transmission Date: 20240109
  Serious: Yes (Other)
  Sender: FDA-Public Use
  Company Number: None

PATIENT
  Age: 34 Year
  Sex: Male
  Weight: 96 kg

DRUGS (11)
  1. ARIPIPRAZOLE [Interacting]
     Active Substance: ARIPIPRAZOLE
     Indication: Bipolar disorder
     Dosage: 10MG/DAY
     Dates: start: 20230204, end: 20230206
  2. TERALITHE [Interacting]
     Active Substance: LITHIUM CARBONATE
     Indication: Bipolar disorder
     Dates: start: 20230201, end: 20230206
  3. ISOTRETINOIN [Concomitant]
     Active Substance: ISOTRETINOIN
  4. TESTOSTERONE ENANTHATE [Concomitant]
     Active Substance: TESTOSTERONE ENANTHATE
  5. ACUPAN [Concomitant]
     Active Substance: NEFOPAM HYDROCHLORIDE
  6. HYDROCORTISONE [Concomitant]
     Active Substance: HYDROCORTISONE
  7. METHADONE [Concomitant]
     Active Substance: METHADONE HYDROCHLORIDE
  8. CLOBETASOL PROPIONATE [Concomitant]
     Active Substance: CLOBETASOL PROPIONATE
  9. DIAZEPAM [Concomitant]
     Active Substance: DIAZEPAM
  10. ARIPIPRAZOLE [Interacting]
     Active Substance: ARIPIPRAZOLE
     Indication: Bipolar disorder
     Dosage: 15MG/DAY
     Dates: start: 2022, end: 20230204
  11. ARIPIPRAZOLE [Interacting]
     Active Substance: ARIPIPRAZOLE
     Indication: Bipolar disorder
     Dosage: 15MG/DAY
     Dates: start: 20230207

REACTIONS (3)
  - Insomnia [Recovered/Resolved]
  - Akathisia [Recovered/Resolved]
  - Gastrointestinal disorder [Recovered/Resolved]

NARRATIVE: CASE EVENT DATE: 20230202
